FAERS Safety Report 7043388-8 (Version None)
Quarter: 2010Q4

REPORT INFORMATION
  Report Type: 
  Country: None (occurrence: None)
  Receive Date: 20101013
  Receipt Date: 20100930
  Transmission Date: 20110411
  Serious: Yes (Disabling)
  Sender: FDA-Public Use
  Company Number: CA-MYLANLABS-2010S1017286

PATIENT
  Sex: Male

DRUGS (2)
  1. CLARUS [Suspect]
     Dates: start: 20080827, end: 20081201
  2. CLARUS [Suspect]
     Dates: start: 20080827, end: 20081201

REACTIONS (6)
  - DEPRESSION [None]
  - HAIR DISORDER [None]
  - HAIR GROWTH ABNORMAL [None]
  - HAIR TEXTURE ABNORMAL [None]
  - SOCIAL AVOIDANT BEHAVIOUR [None]
  - TRICHORRHEXIS [None]
